FAERS Safety Report 24550412 (Version 1)
Quarter: 2024Q4

REPORT INFORMATION
  Report Type: Spontaneous
  Country: US (occurrence: None)
  Receive Date: 20241025
  Receipt Date: 20241025
  Transmission Date: 20250115
  Serious: Yes (Other)
  Sender: Public
  Company Number: None

PATIENT
  Sex: Male

DRUGS (7)
  1. MAYZENT [Suspect]
     Active Substance: SIPONIMOD
     Indication: Multiple sclerosis
     Route: 048
     Dates: start: 20230622
  2. ALBUTEROL AER HFA [Concomitant]
  3. CYMBAL TA CAP 20MG [Concomitant]
  4. GABAPENTIN [Concomitant]
     Active Substance: GABAPENTIN
  5. IMITREX TAB100MG [Concomitant]
  6. LISINOPRIL [Concomitant]
     Active Substance: LISINOPRIL
  7. OVAR REDIHA AER 80MCG [Concomitant]

REACTIONS (11)
  - Loss of consciousness [None]
  - Road traffic accident [None]
  - Brain fog [None]
  - Memory impairment [None]
  - Pain in extremity [None]
  - Paraesthesia [None]
  - Electric shock sensation [None]
  - Muscular weakness [None]
  - Fatigue [None]
  - Vision blurred [None]
  - Eye movement disorder [None]
